FAERS Safety Report 14946143 (Version 1)
Quarter: 2018Q2

REPORT INFORMATION
  Report Type: Spontaneous
  Country: US (occurrence: US)
  Receive Date: 20180508
  Receipt Date: 20180508
  Transmission Date: 20180711
  Serious: Yes (Hospitalization)
  Sender: FDA-Public Use
  Company Number: None

PATIENT
  Sex: Male

DRUGS (1)
  1. CAPECITABINE. [Suspect]
     Active Substance: CAPECITABINE
     Indication: COLON CANCER
     Dosage: 2500 MG DAILY X 14 DAYS (2 PO QAM, 3 PO QPM), PO
     Route: 048
     Dates: start: 201802

REACTIONS (2)
  - Vomiting [None]
  - Diarrhoea [None]
